FAERS Safety Report 10205393 (Version 1)
Quarter: 2014Q2

REPORT INFORMATION
  Report Type: Spontaneous
  Country: US (occurrence: None)
  Receive Date: 20140527
  Receipt Date: 20140527
  Transmission Date: 20141212
  Serious: Yes (Hospitalization)
  Sender: FDA-Public Use
  Company Number: None

PATIENT
  Age: 57 Year
  Sex: Male

DRUGS (14)
  1. CHLORPROMAZINE [Suspect]
     Indication: HICCUPS
     Route: 042
     Dates: start: 20120207, end: 20120208
  2. BISACODYL [Concomitant]
  3. DOCUSATE [Concomitant]
  4. FENTANYL [Concomitant]
  5. FOLIC ACID [Concomitant]
  6. INSULIN ASPART [Concomitant]
  7. LEVETIRACETAM [Concomitant]
  8. METOPROLOL [Concomitant]
  9. NICARDIPINE [Concomitant]
  10. NIMODIPINE [Concomitant]
  11. PHENYTOIN [Concomitant]
  12. RANITIDINE [Concomitant]
  13. SIMVASTATIN [Concomitant]
  14. THIAMINE [Concomitant]

REACTIONS (1)
  - Hypotension [None]
